FAERS Safety Report 10404738 (Version 3)
Quarter: 2014Q4

REPORT INFORMATION
  Report Type: Report from Study
  Country: JP (occurrence: JP)
  Receive Date: 20140824
  Receipt Date: 20141112
  Transmission Date: 20150528
  Serious: Yes (Death)
  Sender: FDA-Public Use
  Company Number: JP-BRISTOL-MYERS SQUIBB COMPANY-17108929

PATIENT
  Age: 85 Year
  Sex: Female
  Weight: 30.5 kg

DRUGS (12)
  1. CONCENTRATED RED BLOOD CELLS [Concomitant]
  2. SPRYCEL [Suspect]
     Active Substance: DASATINIB
     Indication: CHRONIC MYELOID LEUKAEMIA
     Route: 048
     Dates: start: 20121024, end: 20121027
  3. STRONGER NEO-MINOPHAGEN C [Concomitant]
     Active Substance: AMMONIUM GLYCYRRHIZATE\CYSTEINE HYDROCHLORIDE\GLYCINE
  4. GLUCOSE [Concomitant]
     Active Substance: DEXTROSE
  5. SODIUM CHLORIDE. [Concomitant]
     Active Substance: SODIUM CHLORIDE
  6. SODIUM LACTATE. [Concomitant]
     Active Substance: SODIUM LACTATE
  7. CEFTRIAXONE SODIUM. [Concomitant]
     Active Substance: CEFTRIAXONE SODIUM
  8. MEYLON [Concomitant]
     Active Substance: SODIUM BICARBONATE
  9. ANTITHROMBIN III [Concomitant]
     Active Substance: ANTITHROMBIN III HUMAN
  10. MEROPEN [Concomitant]
     Active Substance: MEROPENEM
  11. OMEPRAL [Concomitant]
     Active Substance: OMEPRAZOLE
  12. PRIMPERAN [Concomitant]
     Active Substance: METOCLOPRAMIDE HYDROCHLORIDE

REACTIONS (2)
  - Incorrect drug dosage form administered [Unknown]
  - Malignant neoplasm progression [Fatal]
